FAERS Safety Report 9150925 (Version 1)
Quarter: 2013Q1

REPORT INFORMATION
  Report Type: Spontaneous
  Country: US (occurrence: US)
  Receive Date: 20130308
  Receipt Date: 20130308
  Transmission Date: 20140127
  Serious: No
  Sender: FDA-Public Use
  Company Number: US-GLAXOSMITHKLINE-A0962422A

PATIENT
  Age: 45 Year
  Sex: Female

DRUGS (2)
  1. OLUX [Suspect]
     Indication: DERMATOSIS
     Dosage: 1APP SINGLE DOSE
     Route: 061
     Dates: start: 20120119
  2. VITAMINS [Concomitant]

REACTIONS (10)
  - Skin burning sensation [Unknown]
  - Headache [Unknown]
  - Muscle tightness [Unknown]
  - Muscle tightness [Unknown]
  - Skin irritation [Unknown]
  - Skin exfoliation [Unknown]
  - Pruritus [Unknown]
  - Erythema [Unknown]
  - Pain of skin [Unknown]
  - Dermatitis contact [Unknown]
